FAERS Safety Report 10541211 (Version 1)
Quarter: 2014Q4

REPORT INFORMATION
  Report Type: Spontaneous
  Country: US (occurrence: None)
  Receive Date: 20141010
  Receipt Date: 20141010
  Transmission Date: 20150529
  Serious: No
  Sender: FDA-Public Use
  Company Number: 163-POMAL-14055894

PATIENT
  Age: 71 Year
  Sex: Female
  Weight: 64.86 kg

DRUGS (9)
  1. CALTRATE [Concomitant]
     Active Substance: CALCIUM CARBONATE
  2. LYRICA [Concomitant]
     Active Substance: PREGABALIN
  3. MULTIVITAMINS [Concomitant]
     Active Substance: VITAMINS
  4. TYLENOL EXTRA STRENGTH [Concomitant]
     Active Substance: ACETAMINOPHEN
  5. VESICARE [Concomitant]
     Active Substance: SOLIFENACIN SUCCINATE
  6. VITAMI C [Concomitant]
  7. AMILORIDE HYDROCHLOROTHIAZIDE [Concomitant]
  8. POMALYST [Suspect]
     Active Substance: POMALIDOMIDE
     Indication: PLASMA CELL MYELOMA
     Dosage: 1 IN 1 D
     Route: 048
     Dates: start: 201307
  9. ASPIRINE [Concomitant]
     Active Substance: ASPIRIN

REACTIONS (1)
  - Onychomycosis [None]

NARRATIVE: CASE EVENT DATE: 201312
